FAERS Safety Report 10102329 (Version 3)
Quarter: 2014Q2

REPORT INFORMATION
  Report Type: Spontaneous
  Country: SI (occurrence: SI)
  Receive Date: 20140424
  Receipt Date: 20140625
  Transmission Date: 20141212
  Serious: No
  Sender: FDA-Public Use
  Company Number: SI-ELI_LILLY_AND_COMPANY-SI201404005618

PATIENT
  Age: 44 Year
  Sex: Female

DRUGS (2)
  1. DULOXETINE HYDROCHLORIDE [Suspect]
     Indication: DEPRESSION
     Dosage: 60 MG, UNKNOWN
     Route: 065
     Dates: start: 201311
  2. DULOXETINE HYDROCHLORIDE [Suspect]
     Indication: PAIN

REACTIONS (3)
  - Aspartate aminotransferase increased [Unknown]
  - Alanine aminotransferase increased [Unknown]
  - Bilirubin conjugated increased [Unknown]
